FAERS Safety Report 4579093-7 (Version None)
Quarter: 2005Q1

REPORT INFORMATION
  Report Type: 
  Country: None (occurrence: None)
  Receive Date: 20050119
  Receipt Date: 20040803
  Transmission Date: 20050727
  Serious: Yes (Other)
  Sender: FDA-Public Use
  Company Number: A03200402620

PATIENT

DRUGS (5)
  1. PLAVIX [Suspect]
     Indication: CATHETERISATION CARDIAC
     Dosage: 300 MG ONCE - ORAL
     Route: 048
  2. PLAVIX [Suspect]
     Indication: MYOCARDIAL INFARCTION
     Dosage: 300 MG ONCE - ORAL
     Route: 048
  3. BIVALIRUDIN [Concomitant]
  4. ABCIXIMAB [Concomitant]
  5. ACETYL SALICYLIC ACID USP BAT [Concomitant]

REACTIONS (1)
  - HAEMATEMESIS [None]
